FAERS Safety Report 13529710 (Version 1)
Quarter: 2017Q2

REPORT INFORMATION
  Report Type: Spontaneous
  Country: GB (occurrence: None)
  Receive Date: 20170508
  Receipt Date: 20170508
  Transmission Date: 20170830
  Serious: Yes (Disabling)
  Sender: FDA-Public Use
  Company Number: GB2017K2933SPO

PATIENT
  Age: 71 Year
  Sex: Female
  Weight: 57.15 kg

DRUGS (8)
  1. RANITIDINE. [Suspect]
     Active Substance: RANITIDINE
     Indication: GASTROOESOPHAGEAL REFLUX DISEASE
     Dates: start: 20160901, end: 20161101
  2. VALIUM [Concomitant]
     Active Substance: DIAZEPAM
  3. QUININE (QUININE) [Concomitant]
     Active Substance: QUININE
  4. BUCCASTEM (PROCHLORPERAZINE MALEATE) [Concomitant]
  5. OMEPRAZOLE. [Suspect]
     Active Substance: OMEPRAZOLE
     Indication: GASTROOESOPHAGEAL REFLUX DISEASE
     Route: 048
     Dates: start: 20130101, end: 20161101
  6. LANSOPRAZOLE GENERIC (LANSOPRAZOLE) UNKNOWN [Suspect]
     Active Substance: LANSOPRAZOLE
     Indication: GASTROOESOPHAGEAL REFLUX DISEASE
     Route: 048
     Dates: start: 20130101, end: 20161101
  7. GAVISCON (ALGINIC ACID, ALUMINUM HYDROXIDE GEL, ALUMINUM HYDROXIDE MIXTURE, CALCIUM CARBONATE, CALCIUM CARBONATE X, DRIED ALUMINUM HYDROXIDE, MAGNESIUM TRISILICATE, SODIUM ALGINATE, SODIUM BICARBONATE, SODIUM BICARBONATE POWDER, SODIUM HYDROGEN CARBONATE) [Suspect]
     Active Substance: ALGINIC ACID\ALUMINUM HYDROXIDE\MAGNESIUM TRISILICATE\SODIUM ALGINATE\SODIUM BICARBONATE
     Indication: GASTROOESOPHAGEAL REFLUX DISEASE
     Route: 048
     Dates: start: 20130101, end: 20161101
  8. IODINE. [Concomitant]
     Active Substance: IODINE

REACTIONS (8)
  - Gastrointestinal pain [None]
  - Abdominal pain upper [None]
  - Gastrooesophageal reflux disease [None]
  - Rectal discharge [None]
  - Diarrhoea [None]
  - Drug hypersensitivity [None]
  - Abdominal pain [None]
  - Flatulence [None]

NARRATIVE: CASE EVENT DATE: 20130701
